FAERS Safety Report 6377295-0 (Version None)
Quarter: 2009Q3

REPORT INFORMATION
  Report Type: 
  Country: None (occurrence: None)
  Receive Date: 20090923
  Receipt Date: 20090923
  Transmission Date: 20100115
  Serious: No
  Sender: FDA-Public Use
  Company Number: None

PATIENT
  Age: 51 Year
  Sex: Female
  Weight: 145.9 kg

DRUGS (8)
  1. INSULIN ASPART [Suspect]
     Indication: HYPERGLYCAEMIA
     Dosage: 25 UNITS SQ W/ LUNCH
  2. ALLOPURINOL [Concomitant]
  3. ASPIRIN [Concomitant]
  4. BUPROPION HCL [Concomitant]
  5. CETIRIZINE HCL [Concomitant]
  6. COLCHINE [Concomitant]
  7. LEXAPRO [Concomitant]
  8. GABAPENTIN [Concomitant]

REACTIONS (3)
  - BLOOD GLUCOSE DECREASED [None]
  - CONFUSIONAL STATE [None]
  - LETHARGY [None]
